FAERS Safety Report 19081432 (Version 1)
Quarter: 2021Q1

REPORT INFORMATION
  Report Type: Spontaneous
  Country: CA (occurrence: CA)
  Receive Date: 20210331
  Receipt Date: 20210331
  Transmission Date: 20210420
  Serious: Yes (Other)
  Sender: FDA-Public Use
  Company Number: CA-JNJFOC-20210353333

PATIENT
  Age: 68 Year
  Sex: Female
  Weight: 104 kg

DRUGS (3)
  1. ENTOCORT [Concomitant]
     Active Substance: BUDESONIDE
     Dosage: CAPSULE, SUSTAINED RELEASE
     Route: 065
  2. AMOXICILLIN. [Concomitant]
     Active Substance: AMOXICILLIN
     Route: 065
  3. REMICADE [Suspect]
     Active Substance: INFLIXIMAB
     Indication: CROHN^S DISEASE
     Route: 042

REACTIONS (5)
  - Body temperature fluctuation [Unknown]
  - Off label use [Unknown]
  - Pyoderma gangrenosum [Unknown]
  - Anal fissure [Unknown]
  - Condition aggravated [Unknown]
